FAERS Safety Report 15708905 (Version 1)
Quarter: 2018Q4

REPORT INFORMATION
  Report Type: Spontaneous
  Country: US (occurrence: US)
  Receive Date: 20181211
  Receipt Date: 20181211
  Transmission Date: 20190205
  Serious: Yes (Hospitalization)
  Sender: FDA-Public Use
  Company Number: None

PATIENT
  Age: 45 Year
  Sex: Female

DRUGS (1)
  1. EMGALITY [Suspect]
     Active Substance: GALCANEZUMAB-GNLM
     Indication: MIGRAINE
     Dosage: ?          OTHER FREQUENCY:EVERY MONTH;?
     Route: 058
     Dates: start: 20181207, end: 20181207

REACTIONS (5)
  - Muscle spasms [None]
  - Pharyngeal oedema [None]
  - Oropharyngeal pain [None]
  - Throat tightness [None]
  - Lip swelling [None]

NARRATIVE: CASE EVENT DATE: 20181207
